FAERS Safety Report 7512211-7 (Version None)
Quarter: 2011Q2

REPORT INFORMATION
  Report Type: 
  Country: None (occurrence: None)
  Receive Date: 20110520
  Receipt Date: 20110510
  Transmission Date: 20111010
  Serious: Yes (Other)
  Sender: FDA-Public Use
  Company Number: 917197

PATIENT
  Age: 33 Year
  Sex: Female

DRUGS (12)
  1. CYCLOPHOSPHAMIDE [Suspect]
     Indication: BURKITT'S LYMPHOMA
  2. DOXORUBICIN HYDROCHLORIDE [Suspect]
     Indication: BURKITT'S LYMPHOMA
  3. METHOTREXATE [Suspect]
     Indication: BURKITT'S LYMPHOMA
  4. VINCRISTINE SULFATE [Suspect]
     Indication: BURKITT'S LYMPHOMA
  5. OLANZAPINE [Concomitant]
  6. ETOPOSIDE [Suspect]
     Indication: BURKITT'S LYMPHOMA
  7. IFOSFAMIDE [Suspect]
     Indication: BURKITT'S LYMPHOMA
  8. LAMOTRIGINE [Concomitant]
  9. CYTARABINE [Suspect]
     Indication: BURKITT'S LYMPHOMA
  10. EMTRICITABINE [Concomitant]
  11. TENOFOVIR DISOPROXIL FUMARATE [Concomitant]
  12. RALTEGRAVIR [Concomitant]

REACTIONS (4)
  - MUCOSAL INFLAMMATION [None]
  - PNEUMOCYSTIS JIROVECI PNEUMONIA [None]
  - OESOPHAGEAL CANDIDIASIS [None]
  - DYSPHAGIA [None]
